FAERS Safety Report 6353477-9 (Version None)
Quarter: 2009Q3

REPORT INFORMATION
  Report Type: 
  Country: None (occurrence: None)
  Receive Date: 20090912
  Receipt Date: 20090622
  Transmission Date: 20100115
  Serious: No
  Sender: FDA-Public Use
  Company Number: US-ABBOTT-08P-163-0472106-00

PATIENT
  Sex: Female
  Weight: 83.99 kg

DRUGS (13)
  1. HUMIRA [Suspect]
     Indication: PSORIATIC ARTHROPATHY
     Route: 050
     Dates: start: 20080816
  2. ESTROGENS CONJUGATED [Concomitant]
     Indication: HYSTERECTOMY
     Route: 048
     Dates: start: 20020101
  3. BUPROPION HCL [Concomitant]
     Indication: BIPOLAR I DISORDER
     Route: 048
     Dates: start: 20070101
  4. ARIPIPRAZOLE [Concomitant]
     Indication: BIPOLAR DISORDER
     Route: 048
     Dates: start: 20080101
  5. OXCARBAZEPINE [Concomitant]
     Indication: BIPOLAR I DISORDER
     Route: 048
     Dates: start: 20080101
  6. CEFIXIME [Concomitant]
     Indication: MUSCLE SPASMS
     Route: 048
     Dates: start: 20050101
  7. OXYCODONE HCL [Concomitant]
     Indication: PAIN
     Route: 048
     Dates: start: 20050101
  8. METHADONE [Concomitant]
     Indication: PAIN
     Route: 048
     Dates: start: 20040101
  9. FEXOFENADINE [Concomitant]
     Indication: ASTHMA
     Route: 048
     Dates: start: 19980101
  10. FLUTICASONE PROPIONATE [Concomitant]
     Indication: ASTHMA
     Route: 055
  11. ADVAIR DISKET [Concomitant]
     Indication: ASTHMA
     Route: 055
     Dates: start: 19980101
  12. KLONOPIN [Concomitant]
     Indication: PANIC ATTACK
     Route: 048
     Dates: start: 19940101
  13. LANSOPRAZOLE [Concomitant]
     Indication: GASTROOESOPHAGEAL REFLUX DISEASE
     Route: 048
     Dates: start: 20020101

REACTIONS (2)
  - INCORRECT DOSE ADMINISTERED [None]
  - INJECTION SITE EXTRAVASATION [None]
